FAERS Safety Report 11665443 (Version 17)
Quarter: 2022Q2

REPORT INFORMATION
  Report Type: Spontaneous
  Country: US (occurrence: US)
  Receive Date: 20151027
  Receipt Date: 20220405
  Transmission Date: 20220721
  Serious: Yes (Other)
  Sender: FDA-Public Use
  Company Number: US-PFIZER INC-2015356674

PATIENT
  Age: 42 Year
  Sex: Female
  Weight: 64.5 kg

DRUGS (20)
  1. ELELYSO [Suspect]
     Active Substance: TALIGLUCERASE ALFA
     Indication: Gaucher^s disease
     Dosage: 3800 UNITS, EVERY 2 WEEKS
     Route: 042
     Dates: start: 20151015
  2. ELELYSO [Suspect]
     Active Substance: TALIGLUCERASE ALFA
     Dosage: 3800 UNITS, EVERY 2 WEEKS
     Route: 042
     Dates: start: 20151029
  3. ELELYSO [Suspect]
     Active Substance: TALIGLUCERASE ALFA
     Dosage: 3800 IU, EVERY 2 WEEKS
     Route: 042
     Dates: start: 20151112
  4. ELELYSO [Suspect]
     Active Substance: TALIGLUCERASE ALFA
     Dosage: 3800 IU, EVERY 2 WEEKS
     Route: 042
     Dates: start: 20151130
  5. ELELYSO [Suspect]
     Active Substance: TALIGLUCERASE ALFA
     Dosage: 3800 IU, EVERY 2 WEEKS
     Route: 042
     Dates: start: 20151210
  6. ELELYSO [Suspect]
     Active Substance: TALIGLUCERASE ALFA
     Dosage: 3800 IU, EVERY 2 WEEKS
     Route: 042
     Dates: start: 20151223
  7. ELELYSO [Suspect]
     Active Substance: TALIGLUCERASE ALFA
     Dosage: 3800 UNITS, EVERY 2 WEEKS
     Route: 042
     Dates: start: 20160303
  8. ELELYSO [Suspect]
     Active Substance: TALIGLUCERASE ALFA
     Dosage: 2800 IU, UNK
     Dates: start: 201907
  9. ELELYSO [Suspect]
     Active Substance: TALIGLUCERASE ALFA
     Dosage: 4000 IU
  10. TYLENOL [Concomitant]
     Active Substance: ACETAMINOPHEN
     Indication: Premedication
     Dosage: 650 MG, UNK
     Dates: start: 201510
  11. TYLENOL [Concomitant]
     Active Substance: ACETAMINOPHEN
     Dosage: TWO 1 HOUR PRIOR TO INFUSION
     Dates: start: 20151210
  12. BENADRYL [Concomitant]
     Active Substance: DIPHENHYDRAMINE HYDROCHLORIDE
     Indication: Premedication
     Dosage: UNK
     Route: 048
     Dates: start: 201510
  13. BENADRYL [Concomitant]
     Active Substance: DIPHENHYDRAMINE HYDROCHLORIDE
     Dosage: 50 MG, UNK
     Route: 048
     Dates: start: 20151112
  14. BENADRYL [Concomitant]
     Active Substance: DIPHENHYDRAMINE HYDROCHLORIDE
     Dosage: UNK, AS NEEDED
     Route: 042
  15. BENADRYL [Concomitant]
     Active Substance: DIPHENHYDRAMINE HYDROCHLORIDE
     Dosage: 50 MG, AT START OF INFUSION
     Route: 042
  16. CLARITIN [Concomitant]
     Active Substance: LORATADINE
     Indication: Premedication
     Dosage: 1 DF, UNK
     Dates: start: 201510
  17. CLARITIN [Concomitant]
     Active Substance: LORATADINE
     Dosage: UNK, 12 HOURS AND 2 HOURS BEFORE INFUSION
  18. PEPCID [Concomitant]
     Active Substance: FAMOTIDINE
     Indication: Premedication
     Dosage: UNK
     Dates: start: 201510
  19. PEPCID [Concomitant]
     Active Substance: FAMOTIDINE
     Dosage: ONE 12 HOURS PRIOR TO INFUSION AND THEN AGAIN 2 HOURS PRIOR TO INFUSION
     Dates: start: 201512
  20. PEPCID [Concomitant]
     Active Substance: FAMOTIDINE
     Dosage: UNK, 12 HOURS AND 2 HOURS BEFORE INFUSION

REACTIONS (10)
  - Retinal detachment [Not Recovered/Not Resolved]
  - Swelling of eyelid [Not Recovered/Not Resolved]
  - Eyelids pruritus [Not Recovered/Not Resolved]
  - Cough [Recovered/Resolved]
  - Nausea [Not Recovered/Not Resolved]
  - Dyspepsia [Not Recovered/Not Resolved]
  - Abdominal discomfort [Not Recovered/Not Resolved]
  - Cold sweat [Recovered/Resolved]
  - Bone pain [Not Recovered/Not Resolved]
  - Illness [Unknown]

NARRATIVE: CASE EVENT DATE: 20151001
